FAERS Safety Report 14559714 (Version 2)
Quarter: 2019Q2

REPORT INFORMATION
  Report Type: Spontaneous
  Country: US (occurrence: US)
  Receive Date: 20180221
  Receipt Date: 20190408
  Transmission Date: 20190711
  Serious: Yes (Other)
  Sender: FDA-Public Use
  Company Number: US-VIFOR (INTERNATIONAL) INC.-VIT-2018-01794

PATIENT
  Age: 60 Year
  Sex: Male

DRUGS (9)
  1. GLIPIZIDE. [Concomitant]
     Active Substance: GLIPIZIDE
  2. METFORMIN HCL [Concomitant]
     Active Substance: METFORMIN HYDROCHLORIDE
  3. VITAMIN D2 [Concomitant]
     Active Substance: ERGOCALCIFEROL
  4. SODIUM CARBONATE [Concomitant]
     Active Substance: SODIUM CARBONATE
  5. ATORVASTATIN CALCIUM. [Concomitant]
     Active Substance: ATORVASTATIN CALCIUM
  6. JANUVIA [Concomitant]
     Active Substance: SITAGLIPTIN PHOSPHATE
  7. VELTASSA [Suspect]
     Active Substance: PATIROMER
     Indication: HYPERKALAEMIA
     Route: 048
     Dates: start: 20180220
  8. CARVEDILOL. [Concomitant]
     Active Substance: CARVEDILOL
  9. LISINOPRIL. [Concomitant]
     Active Substance: LISINOPRIL

REACTIONS (3)
  - Musculoskeletal disorder [Unknown]
  - Product dose omission [Unknown]
  - Cardiac operation [Unknown]

NARRATIVE: CASE EVENT DATE: 20190318
